FAERS Safety Report 8566966-3 (Version None)
Quarter: 2012Q3

REPORT INFORMATION
  Report Type: 
  Country: None (occurrence: None)
  Receive Date: 20120803
  Receipt Date: 20110929
  Transmission Date: 20120928
  Serious: No
  Sender: FDA-Public Use
  Company Number: US-ABBOTT-11P-163-0860607-00

PATIENT
  Age: 63 Year
  Sex: Female
  Weight: 59.928 kg

DRUGS (9)
  1. FISH OIL [Concomitant]
     Indication: PRODUCT USED FOR UNKNOWN INDICATION
  2. EXFORGE [Concomitant]
     Indication: HYPERTENSION
  3. BRIMONIDINE 0.2 OP SOL [Concomitant]
     Indication: GLAUCOMA
  4. CALCIUM [Concomitant]
     Indication: PRODUCT USED FOR UNKNOWN INDICATION
  5. NIASPAN [Suspect]
     Indication: BLOOD CHOLESTEROL INCREASED
     Dates: start: 20100101
  6. HYDROCHLOROTHIAZDE TAB [Concomitant]
     Indication: HYPERTENSION
  7. ASPIRIN [Concomitant]
     Indication: PRODUCT USED FOR UNKNOWN INDICATION
  8. FLU VACCINE [Concomitant]
     Indication: PRODUCT USED FOR UNKNOWN INDICATION
     Dates: start: 20110921, end: 20110921
  9. VITAMIN TAB [Concomitant]
     Indication: PRODUCT USED FOR UNKNOWN INDICATION

REACTIONS (7)
  - INTRAOCULAR PRESSURE INCREASED [None]
  - PARAESTHESIA [None]
  - PRURITUS [None]
  - VISION BLURRED [None]
  - MUSCULAR WEAKNESS [None]
  - BLOOD CHOLESTEROL INCREASED [None]
  - FEELING HOT [None]
